FAERS Safety Report 5809495-X (Version None)
Quarter: 2008Q3

REPORT INFORMATION
  Report Type: 
  Country: None (occurrence: None)
  Receive Date: 20080715
  Receipt Date: 20080707
  Transmission Date: 20090109
  Serious: Yes (Hospitalization, Other)
  Sender: FDA-Public Use
  Company Number: US-AMGEN-STX227562

PATIENT
  Sex: Female

DRUGS (2)
  1. ENBREL [Suspect]
     Indication: RHEUMATOID ARTHRITIS
     Route: 058
     Dates: start: 20020401
  2. METHOTREXATE [Concomitant]
     Route: 065

REACTIONS (9)
  - ANAEMIA [None]
  - BLISTER [None]
  - DEVICE BREAKAGE [None]
  - FRACTURE DELAYED UNION [None]
  - GASTROINTESTINAL INFECTION [None]
  - HIP FRACTURE [None]
  - RETROPERITONEAL HAEMATOMA [None]
  - SEPSIS [None]
  - THROMBOSIS [None]
